FAERS Safety Report 9058306 (Version 1)
Quarter: 2013Q1

REPORT INFORMATION
  Report Type: Report from Study
  Country: CA (occurrence: CA)
  Receive Date: 20130211
  Receipt Date: 20130211
  Transmission Date: 20140127
  Serious: Yes (Other)
  Sender: FDA-Public Use
  Company Number: CA-JNJFOC-20130117348

PATIENT
  Age: 46 None
  Sex: Female
  Weight: 52.16 kg

DRUGS (4)
  1. REMICADE [Suspect]
     Indication: BEHCET^S SYNDROME
     Route: 042
  2. REMICADE [Suspect]
     Indication: BEHCET^S SYNDROME
     Route: 042
  3. REMICADE [Suspect]
     Indication: BEHCET^S SYNDROME
     Dosage: FROM AROUND OCT-NOV-2012
     Route: 042
     Dates: start: 2012
  4. PREDNISONE [Concomitant]
     Route: 065

REACTIONS (2)
  - Behcet^s syndrome [Unknown]
  - Pharyngeal ulceration [Unknown]
